FAERS Safety Report 17585873 (Version 4)
Quarter: 2020Q3

REPORT INFORMATION
  Report Type: Spontaneous
  Country: US (occurrence: US)
  Receive Date: 20200326
  Receipt Date: 20200902
  Transmission Date: 20201102
  Serious: No
  Sender: FDA-Public Use
  Company Number: US-PFIZER INC-2018484800

PATIENT
  Age: 68 Year
  Sex: Male
  Weight: 205 kg

DRUGS (5)
  1. LYRICA [Suspect]
     Active Substance: PREGABALIN
     Dosage: 300 MG, UNK
  2. LYRICA [Suspect]
     Active Substance: PREGABALIN
     Indication: NEUROPATHY PERIPHERAL
     Dosage: 200 MG, 3X/DAY (1 CAPSULE 3 TIMES A DAY)
     Route: 048
  3. LYRICA [Suspect]
     Active Substance: PREGABALIN
     Indication: POLYNEUROPATHY
     Dosage: 200 MG, AS NEEDED, [1 CAPSULE BY MOUTH 3 (THREE) TIMES DAILY]
     Route: 048
     Dates: start: 20190206, end: 2019
  4. LYRICA [Suspect]
     Active Substance: PREGABALIN
     Dosage: 200 MG, AS NEEDED, [1 CAPSULE BY MOUTH 3 (THREE) TIMES DAILY AS NEEDED]
     Route: 048
     Dates: start: 20190503
  5. LYRICA [Suspect]
     Active Substance: PREGABALIN
     Dosage: 200 MG, 3X/DAY (1 CAPSULE BY MOUTH 3 TIMES DAILY)
     Route: 048
     Dates: start: 20200521

REACTIONS (1)
  - Drug ineffective [Unknown]
